FAERS Safety Report 16457353 (Version 1)
Quarter: 2019Q2

REPORT INFORMATION
  Report Type: Spontaneous
  Country: US (occurrence: US)
  Receive Date: 20190510
  Receipt Date: 20190510
  Transmission Date: 20190711
  Serious: Yes (Hospitalization)
  Sender: FDA-Public Use
  Company Number: None

PATIENT
  Age: 56 Year
  Sex: Female
  Weight: 46.7 kg

DRUGS (1)
  1. PAZOPANIB (GW786034) [Suspect]
     Active Substance: PAZOPANIB
     Dates: end: 20190408

REACTIONS (10)
  - Fistula of small intestine [None]
  - Abdominal pain [None]
  - Pancreatic fistula [None]
  - Abdominal mass [None]
  - Faeces discoloured [None]
  - Tumour haemorrhage [None]
  - Packed red blood cell transfusion [None]
  - Dyspnoea exertional [None]
  - Upper gastrointestinal haemorrhage [None]
  - Presyncope [None]

NARRATIVE: CASE EVENT DATE: 20190502
